FAERS Safety Report 11352669 (Version 1)
Quarter: 2015Q3

REPORT INFORMATION
  Report Type: Spontaneous
  Country: US (occurrence: US)
  Receive Date: 20150807
  Receipt Date: 20150807
  Transmission Date: 20151125
  Serious: No
  Sender: FDA-Public Use
  Company Number: US-JNJFOC-20150424739

PATIENT
  Age: 79 Year
  Sex: Female
  Weight: 59.88 kg

DRUGS (2)
  1. MENS ROGAINE [Suspect]
     Active Substance: MINOXIDIL
     Route: 061
  2. MENS ROGAINE [Suspect]
     Active Substance: MINOXIDIL
     Indication: ALOPECIA
     Dosage: MORE THAN 1ML, BUT UNSURE HOW MUCH FOR 3-4 MONTHS OR LONGER
     Route: 061

REACTIONS (1)
  - Wrong patient received medication [Unknown]
